FAERS Safety Report 22520597 (Version 1)
Quarter: 2023Q2

REPORT INFORMATION
  Report Type: Spontaneous
  Country: NO (occurrence: NO)
  Receive Date: 20230605
  Receipt Date: 20230605
  Transmission Date: 20230722
  Serious: Yes (Other)
  Sender: FDA-Public Use
  Company Number: None

PATIENT
  Sex: Female
  Weight: 61 kg

DRUGS (2)
  1. MIRENA [Suspect]
     Active Substance: LEVONORGESTREL
     Indication: Contraception
     Dosage: 20?G/DAY
     Route: 015
  2. MIRENA [Suspect]
     Active Substance: LEVONORGESTREL
     Indication: Contraception
     Dosage: 20?G/DAY
     Route: 015
     Dates: start: 2019, end: 202303

REACTIONS (4)
  - Migraine [Recovered/Resolved with Sequelae]
  - Ovarian cyst [Unknown]
  - Fatigue [Recovered/Resolved with Sequelae]
  - Breast atrophy [Recovered/Resolved]

NARRATIVE: CASE EVENT DATE: 20100101
